FAERS Safety Report 6832735-5 (Version None)
Quarter: 2010Q3

REPORT INFORMATION
  Report Type: 
  Country: None (occurrence: None)
  Receive Date: 20100712
  Receipt Date: 20100702
  Transmission Date: 20110219
  Serious: Yes (Other)
  Sender: FDA-Public Use
  Company Number: US-ABBOTT-10P-163-0655062-00

PATIENT
  Sex: Female
  Weight: 123.03 kg

DRUGS (5)
  1. HUMIRA [Suspect]
     Indication: CROHN'S DISEASE
     Dates: start: 20090301
  2. IMURAN [Concomitant]
     Indication: CROHN'S DISEASE
  3. ZOLOFT [Concomitant]
     Indication: DEPRESSION
  4. WELLBUTRIN [Concomitant]
     Indication: DEPRESSION
  5. REQUIP [Concomitant]
     Indication: RESTLESS LEGS SYNDROME

REACTIONS (7)
  - ABDOMINAL PAIN [None]
  - ARTHRALGIA [None]
  - CHOLELITHIASIS [None]
  - CROHN'S DISEASE [None]
  - GASTROINTESTINAL INFLAMMATION [None]
  - HEADACHE [None]
  - HEPATIC ENZYME INCREASED [None]
